FAERS Safety Report 5125429-8 (Version None)
Quarter: 2006Q3

REPORT INFORMATION
  Report Type: 
  Country: None (occurrence: None)
  Receive Date: 20060822
  Receipt Date: 20060724
  Transmission Date: 20061208
  Serious: No
  Sender: FDA-Public Use
  Company Number: PHEH2006US09547

PATIENT
  Sex: Female

DRUGS (2)
  1. ENABLEX [Suspect]
     Indication: HYPERTONIC BLADDER
     Dosage: SEE IMAGE
     Dates: start: 20060722, end: 20060724
  2. ENABLEX [Suspect]
     Indication: HYPERTONIC BLADDER
     Dosage: SEE IMAGE

REACTIONS (5)
  - BLADDER SPASM [None]
  - BLOOD URINE PRESENT [None]
  - DYSURIA [None]
  - MUSCLE SPASMS [None]
  - POLLAKIURIA [None]
